FAERS Safety Report 10043693 (Version 1)
Quarter: 2014Q1

REPORT INFORMATION
  Report Type: Spontaneous
  Country: JP (occurrence: JP)
  Receive Date: 20140328
  Receipt Date: 20140328
  Transmission Date: 20141002
  Serious: Yes (Other)
  Sender: FDA-Public Use
  Company Number: JP-RANBAXY-2014RR-79645

PATIENT
  Age: 77 Year
  Sex: Male

DRUGS (5)
  1. CRAVIT [Suspect]
     Indication: CHOLECYSTITIS ACUTE
     Dosage: UNK
     Route: 048
  2. CARBENIN [Suspect]
     Indication: CHOLECYSTITIS ACUTE
     Dosage: UNK
     Route: 065
  3. CEFTAZIDIME [Suspect]
     Indication: CHOLECYSTITIS ACUTE
     Dosage: UNK
     Route: 065
  4. CLINDAMYCIN [Suspect]
     Indication: PRODUCT USED FOR UNKNOWN INDICATION
     Dosage: UNK
     Route: 065
  5. VANCOMYCIN [Suspect]
     Indication: CHOLECYSTITIS ACUTE
     Dosage: UNK
     Route: 065

REACTIONS (1)
  - Drug reaction with eosinophilia and systemic symptoms [Recovered/Resolved]
